FAERS Safety Report 14578054 (Version 1)
Quarter: 2018Q1

REPORT INFORMATION
  Report Type: Spontaneous
  Country: US (occurrence: US)
  Receive Date: 20180227
  Receipt Date: 20180227
  Transmission Date: 20180509
  Serious: Yes (Other)
  Sender: FDA-Public Use
  Company Number: US-JNJFOC-20180213850

PATIENT

DRUGS (1)
  1. IBRUTINIB [Suspect]
     Active Substance: IBRUTINIB
     Indication: CHRONIC LYMPHOCYTIC LEUKAEMIA
     Route: 048

REACTIONS (18)
  - Cardiac failure [Unknown]
  - Arthralgia [Unknown]
  - Infection [Unknown]
  - Pneumonitis [Unknown]
  - Skin toxicity [Unknown]
  - Contusion [Unknown]
  - Diarrhoea [Unknown]
  - Hepatic function abnormal [Unknown]
  - Cytopenia [Unknown]
  - Hypertension [Unknown]
  - Myalgia [Unknown]
  - Fatigue [Unknown]
  - Renal impairment [Unknown]
  - Oedema peripheral [Unknown]
  - Transaminases increased [Unknown]
  - Atrial fibrillation [Unknown]
  - Colitis [Unknown]
  - Haemorrhage [Unknown]
